FAERS Safety Report 10037935 (Version 2)
Quarter: 2014Q3

REPORT INFORMATION
  Report Type: Spontaneous
  Country: GB (occurrence: GB)
  Receive Date: 20140326
  Receipt Date: 20140703
  Transmission Date: 20150326
  Serious: Yes (Disabling)
  Sender: FDA-Public Use
  Company Number: GB-BAYER-2014-042799

PATIENT
  Age: 65 Year
  Sex: Male

DRUGS (1)
  1. NEXAVAR [Suspect]
     Active Substance: SORAFENIB
     Indication: HEPATOCELLULAR CARCINOMA
     Dosage: 400 MG, BID
     Route: 048
     Dates: start: 20131104, end: 20131224

REACTIONS (3)
  - Dysphonia [Unknown]
  - Fistula [Unknown]
  - Laryngeal necrosis [Recovered/Resolved with Sequelae]

NARRATIVE: CASE EVENT DATE: 2013
